FAERS Safety Report 15800396 (Version 3)
Quarter: 2019Q2

REPORT INFORMATION
  Report Type: Spontaneous
  Country: US (occurrence: US)
  Receive Date: 20190108
  Receipt Date: 20190405
  Transmission Date: 20190711
  Serious: Yes (Life-Threatening, Hospitalization, Disabling, Other)
  Sender: FDA-Public Use
  Company Number: US-VIFOR (INTERNATIONAL) INC.-VIT-2019-00097

PATIENT
  Age: 54 Year
  Sex: Male
  Weight: 77.63 kg

DRUGS (1)
  1. MIRCERA [Suspect]
     Active Substance: METHOXY POLYETHYLENE GLYCOL-EPOETIN BETA
     Indication: NEPHROGENIC ANAEMIA
     Dosage: FIRST DOSE
     Route: 042
     Dates: start: 20181207, end: 20181207

REACTIONS (19)
  - Seizure [Not Recovered/Not Resolved]
  - Dysphagia [Not Recovered/Not Resolved]
  - Abdominal pain [Unknown]
  - Arteriovenous fistula site haemorrhage [Unknown]
  - Cerebrovascular accident [Not Recovered/Not Resolved]
  - Asthenia [Unknown]
  - Nausea [Unknown]
  - Hyperhidrosis [Unknown]
  - Hypotension [Not Recovered/Not Resolved]
  - Hemiplegia [Not Recovered/Not Resolved]
  - Anaphylactic reaction [Not Recovered/Not Resolved]
  - Lethargy [Unknown]
  - Troponin increased [Not Recovered/Not Resolved]
  - Transient ischaemic attack [Unknown]
  - Shunt thrombosis [Unknown]
  - Chest pain [Unknown]
  - Vomiting [Unknown]
  - Dysarthria [Unknown]
  - Pain in extremity [Unknown]

NARRATIVE: CASE EVENT DATE: 20181207
